FAERS Safety Report 5034326-8 (Version None)
Quarter: 2006Q2

REPORT INFORMATION
  Report Type: 
  Country: None (occurrence: None)
  Receive Date: 20060518
  Receipt Date: 20050620
  Transmission Date: 20061013
  Serious: Yes (Other)
  Sender: FDA-Public Use
  Company Number: 2005092079

PATIENT
  Age: 26 Year
  Sex: Female
  Weight: 90.7194 kg

DRUGS (1)
  1. DEPO-PROVERA [Suspect]
     Indication: CONTRACEPTION
     Dosage: (SINGLE INJECTION), INTRAMUSCULAR
     Route: 030
     Dates: start: 20050101, end: 20050101

REACTIONS (1)
  - MENORRHAGIA [None]
